FAERS Safety Report 8292832-7 (Version None)
Quarter: 2012Q2

REPORT INFORMATION
  Report Type: 
  Country: None (occurrence: None)
  Receive Date: 20120417
  Receipt Date: 20120105
  Transmission Date: 20120825
  Serious: No
  Sender: FDA-Public Use
  Company Number: US-ASTRAZENECA-2011SE74362

PATIENT
  Age: 85 Year
  Sex: Female

DRUGS (3)
  1. OSTEOPOROSIS MEDICATION [Suspect]
     Indication: OSTEOPOROSIS
     Route: 065
  2. NEXIUM [Suspect]
     Route: 048
  3. NEXIUM [Suspect]
     Route: 048

REACTIONS (7)
  - OEDEMA PERIPHERAL [None]
  - GASTROOESOPHAGEAL REFLUX DISEASE [None]
  - DRUG DOSE OMISSION [None]
  - FACE OEDEMA [None]
  - OSTEOPOROSIS [None]
  - SWELLING FACE [None]
  - ERYTHEMA [None]
